FAERS Safety Report 8331353-X (Version None)
Quarter: 2012Q2

REPORT INFORMATION
  Report Type: 
  Country: None (occurrence: None)
  Receive Date: 20120502
  Receipt Date: 20120501
  Transmission Date: 20120825
  Serious: Yes (Other)
  Sender: FDA-Public Use
  Company Number: US-ROCHE-1018143

PATIENT
  Sex: Male

DRUGS (2)
  1. AVASTIN [Suspect]
     Indication: AGE-RELATED MACULAR DEGENERATION
     Dosage: 100MG/4ML. LAST DOSE PRIOR TO THE EVENT : 30 SEP 2011
     Route: 050
     Dates: start: 20110501
  2. AVASTIN [Suspect]
     Route: 031

REACTIONS (3)
  - EYE INFECTION [None]
  - TRANSMISSION OF AN INFECTIOUS AGENT VIA A MEDICINAL PRODUCT [None]
  - BLINDNESS UNILATERAL [None]
